FAERS Safety Report 14600047 (Version 1)
Quarter: 2018Q1

REPORT INFORMATION
  Report Type: Spontaneous
  Country: US (occurrence: US)
  Receive Date: 20180305
  Receipt Date: 20180305
  Transmission Date: 20180509
  Serious: No
  Sender: FDA-Public Use
  Company Number: US-AMGEN-USASP2018028388

PATIENT
  Sex: Female

DRUGS (7)
  1. ENBREL [Suspect]
     Active Substance: ETANERCEPT
     Indication: JUVENILE IDIOPATHIC ARTHRITIS
     Dosage: 50 MG, QWK
     Route: 065
     Dates: start: 2016
  2. HUMIRA [Concomitant]
     Active Substance: ADALIMUMAB
  3. ENBREL [Suspect]
     Active Substance: ETANERCEPT
     Indication: UVEITIS
  4. ENBREL [Suspect]
     Active Substance: ETANERCEPT
     Indication: UVEITIS
  5. ENBREL [Suspect]
     Active Substance: ETANERCEPT
     Indication: EYE INFLAMMATION
  6. METHOTREXATE. [Suspect]
     Active Substance: METHOTREXATE
     Indication: PRODUCT USED FOR UNKNOWN INDICATION
     Route: 065
  7. ENBREL [Suspect]
     Active Substance: ETANERCEPT
     Indication: SJOGREN^S SYNDROME
     Dosage: 25 MG, 2 TIMES/WK
     Route: 065

REACTIONS (6)
  - Headache [Unknown]
  - Therapeutic response unexpected [Unknown]
  - Injection site mass [Unknown]
  - Off label use [Unknown]
  - Injection site cellulitis [Unknown]
  - Injection site reaction [Unknown]

NARRATIVE: CASE EVENT DATE: 2016
